FAERS Safety Report 20768220 (Version 1)
Quarter: 2022Q2

REPORT INFORMATION
  Report Type: Spontaneous
  Country: DE (occurrence: DE)
  Receive Date: 20220429
  Receipt Date: 20220429
  Transmission Date: 20220721
  Serious: Yes (Hospitalization, Disabling, Other)
  Sender: FDA-Public Use
  Company Number: DE-STADA-246655

PATIENT
  Age: 43 Year
  Sex: Female

DRUGS (22)
  1. ASPIRIN [Suspect]
     Active Substance: ASPIRIN
     Indication: Retinal artery occlusion
     Dosage: 100 MILLIGRAM, ONCE A DAY
     Route: 048
  2. PANTOPRAZOLE [Suspect]
     Active Substance: PANTOPRAZOLE
     Indication: Retinal artery occlusion
     Dosage: 40 MILLIGRAM, ONCE A DAY
     Route: 048
  3. ATROPINE [Suspect]
     Active Substance: ATROPINE
     Indication: Retinal artery occlusion
     Dosage: UNK UNK, ONCE A DAY (DOSE REDUCED)
     Route: 047
  4. ATROPINE [Suspect]
     Active Substance: ATROPINE
     Dosage: UNK UNK, TWO TIMES A DAY
     Route: 047
  5. CLINDAMYCIN [Suspect]
     Active Substance: CLINDAMYCIN
     Indication: Retinal artery occlusion
     Dosage: 300 MILLIGRAM, FOUR TIMES/DAY
     Route: 048
  6. DEXPANTHENOL [Suspect]
     Active Substance: DEXPANTHENOL
     Indication: Retinal artery occlusion
     Dosage: UNK UNK, FOUR TIMES/DAY
     Route: 047
  7. DEXPANTHENOL [Suspect]
     Active Substance: DEXPANTHENOL
     Dosage: UNK UNK, EVERY TWO HOURS
     Route: 047
  8. DEXPANTHENOL [Suspect]
     Active Substance: DEXPANTHENOL
     Dosage: UNK (DOSE REDUCED (6 TIMES DAILY))
     Route: 047
  9. HYALURONIC ACID\LIDOCAINE [Suspect]
     Active Substance: HYALURONIC ACID\LIDOCAINE
     Indication: Dermal filler injection
     Dosage: 0.7 MILLILITER (GLABELLAR INJECTION)
     Route: 065
  10. METHYLPREDNISOLONE [Suspect]
     Active Substance: METHYLPREDNISOLONE
     Indication: Retinal artery occlusion
     Dosage: 100 MILLIGRAM, ONCE A DAY
     Route: 042
  11. OFLOXACIN [Suspect]
     Active Substance: OFLOXACIN
     Indication: Retinal artery occlusion
     Dosage: 3 MILLIGRAM PER GRAM, FOUR TIMES/DAY
     Route: 047
  12. OFLOXACIN [Suspect]
     Active Substance: OFLOXACIN
     Indication: Retinal artery occlusion
     Dosage: 3 MILLIGRAM PER GRAM, 3 TIMES A DAY (DOSE REDUCED)
     Route: 047
  13. PREDNISOLONE [Suspect]
     Active Substance: PREDNISOLONE
     Indication: Retinal artery occlusion
     Dosage: 10 MILLIGRAM PER MILLILITRE, 3 TIMES A DAY
     Route: 047
  14. PREDNISOLONE [Suspect]
     Active Substance: PREDNISOLONE
     Dosage: 10 MILLIGRAM PER MILLILITRE, ONCE A DAY
     Route: 047
  15. PREDNISOLONE [Suspect]
     Active Substance: PREDNISOLONE
     Dosage: 10 MILLIGRAM PER MILLILITRE, TWO TIMES A DAY (DOSE REDUCED)
     Route: 047
  16. PREDNISONE [Suspect]
     Active Substance: PREDNISONE
     Indication: Retinal artery occlusion
     Dosage: 5 MILLIGRAM, ONCE A DAY (FOR TWO WEEKS)
     Route: 048
  17. PREDNISONE [Suspect]
     Active Substance: PREDNISONE
     Dosage: 90 MILLIGRAM
     Route: 048
  18. PREDNISONE [Suspect]
     Active Substance: PREDNISONE
     Dosage: 60 MILLIGRAM, ONCE A DAY
     Route: 048
  19. PREDNISONE [Suspect]
     Active Substance: PREDNISONE
     Dosage: 50 MILLIGRAM, ONCE A DAY (REDUCED)
     Route: 048
  20. PREDNISONE [Suspect]
     Active Substance: PREDNISONE
     Dosage: 10 MILLIGRAM (FURTHER REDUCTION OF 10 MG EVERY THREE DAYS, REMAINING ON 10 MG)
     Route: 048
  21. TINZAPARIN SODIUM [Suspect]
     Active Substance: TINZAPARIN SODIUM
     Indication: Retinal artery occlusion
     Dosage: 4.500 IE
     Route: 058
  22. DEXAMETHASONE [Concomitant]
     Active Substance: DEXAMETHASONE
     Indication: Retinal artery occlusion
     Dosage: 1 MILLIGRAM PER MILLILITRE
     Route: 047

REACTIONS (9)
  - Anterior segment ischaemia [Not Recovered/Not Resolved]
  - Blindness [Not Recovered/Not Resolved]
  - Retinal degeneration [Not Recovered/Not Resolved]
  - Hypotonia [Not Recovered/Not Resolved]
  - Lagophthalmos [Not Recovered/Not Resolved]
  - Madarosis [Not Recovered/Not Resolved]
  - Skin lesion [Not Recovered/Not Resolved]
  - Strabismus [Not Recovered/Not Resolved]
  - Drug ineffective [Unknown]
